FAERS Safety Report 15695258 (Version 1)
Quarter: 2018Q4

REPORT INFORMATION
  Report Type: Spontaneous
  Country: NO (occurrence: NO)
  Receive Date: 20181206
  Receipt Date: 20181206
  Transmission Date: 20190205
  Serious: Yes (Other)
  Sender: FDA-Public Use
  Company Number: NO-TEVA-2018-NO-982612

PATIENT
  Age: 41 Year
  Sex: Female
  Weight: 92 kg

DRUGS (2)
  1. LAMICTAL [Concomitant]
     Active Substance: LAMOTRIGINE
     Dates: start: 20180130
  2. PREDNISOLON [Suspect]
     Active Substance: PREDNISOLONE
     Indication: TENDONITIS
     Dosage: 20 MILLIGRAM DAILY;
     Route: 048
     Dates: start: 20181101, end: 20181106

REACTIONS (10)
  - Decreased appetite [Unknown]
  - Fatigue [Recovered/Resolved]
  - Asthenia [Recovered/Resolved]
  - Mania [Recovered/Resolved]
  - Nausea [Recovered/Resolved]
  - Dizziness [Recovered/Resolved]
  - Pyrexia [Unknown]
  - Confusional state [Recovered/Resolved]
  - Mood swings [Recovered/Resolved]
  - Headache [Recovered/Resolved]

NARRATIVE: CASE EVENT DATE: 20181102
